FAERS Safety Report 7464378-7 (Version None)
Quarter: 2011Q1

REPORT INFORMATION
  Report Type: 
  Country: None (occurrence: None)
  Receive Date: 20110302
  Receipt Date: 20101101
  Transmission Date: 20110831
  Serious: Yes (Death)
  Sender: FDA-Public Use
  Company Number: 163-21880-10091800

PATIENT
  Age: 79 Year
  Sex: Male

DRUGS (1)
  1. REVLIMID [Suspect]
     Indication: MYELOFIBROSIS
     Dosage: 5 MG, 1 IN 1 D, PO
     Route: 048
     Dates: start: 20100402

REACTIONS (5)
  - OEDEMA PERIPHERAL [None]
  - RENAL FAILURE [None]
  - JOINT SWELLING [None]
  - DISEASE PROGRESSION [None]
  - MYELOFIBROSIS [None]
